FAERS Safety Report 5394248-X (Version None)
Quarter: 2007Q3

REPORT INFORMATION
  Report Type: 
  Country: None (occurrence: None)
  Receive Date: 20070723
  Receipt Date: 20070516
  Transmission Date: 20080115
  Serious: No
  Sender: FDA-Public Use
  Company Number: A0651589A

PATIENT
  Sex: Female

DRUGS (3)
  1. AVANDIA [Suspect]
     Route: 048
     Dates: start: 20060101
  2. METFORMIN HCL [Concomitant]
  3. GLYBURIDE [Concomitant]

REACTIONS (3)
  - ACCIDENTAL OVERDOSE [None]
  - BLOOD GLUCOSE DECREASED [None]
  - SWELLING [None]
